FAERS Safety Report 7286883-9 (Version None)
Quarter: 2011Q1

REPORT INFORMATION
  Report Type: 
  Country: None (occurrence: None)
  Receive Date: 20110211
  Receipt Date: 20110201
  Transmission Date: 20110831
  Serious: Yes (Hospitalization)
  Sender: FDA-Public Use
  Company Number: US-BIOGENIDEC-2010BI023871

PATIENT
  Age: 48 Year
  Sex: Male
  Weight: 81 kg

DRUGS (3)
  1. TYSABRI [Suspect]
     Indication: MULTIPLE SCLEROSIS
     Route: 042
     Dates: start: 20071126
  2. PAIN MEDICATION (NOS) [Concomitant]
     Indication: ARTHRALGIA
  3. PAIN MEDICATION (NOS) [Concomitant]
     Indication: BACK PAIN

REACTIONS (6)
  - BACK PAIN [None]
  - SPINAL DISORDER [None]
  - MUSCULOSKELETAL STIFFNESS [None]
  - HYPOAESTHESIA [None]
  - MUSCLE SPASMS [None]
  - MUSCULOSKELETAL PAIN [None]
